FAERS Safety Report 21196805 (Version 1)
Quarter: 2022Q3

REPORT INFORMATION
  Report Type: Spontaneous
  Country: CA (occurrence: CA)
  Receive Date: 20220810
  Receipt Date: 20220810
  Transmission Date: 20221026
  Serious: No
  Sender: FDA-Public Use
  Company Number: CA-JAZZ-2022-CA-015245

PATIENT

DRUGS (1)
  1. VYXEOS [Suspect]
     Active Substance: CYTARABINE\DAUNORUBICIN
     Indication: Product used for unknown indication
     Dosage: 104 MG/DOSE FOR DAY 1, DAY 3, AND 88 MG/DOSE, INDUCTION

REACTIONS (1)
  - Off label use [Unknown]
